FAERS Safety Report 19305035 (Version 3)
Quarter: 2023Q2

REPORT INFORMATION
  Report Type: Spontaneous
  Country: US (occurrence: US)
  Receive Date: 20210526
  Receipt Date: 20230621
  Transmission Date: 20230722
  Serious: Yes (Other)
  Sender: FDA-Public Use
  Company Number: US-JNJFOC-20210534766

PATIENT
  Age: 56 Year
  Sex: Female

DRUGS (17)
  1. ELMIRON [Suspect]
     Active Substance: PENTOSAN POLYSULFATE SODIUM
     Indication: Cystitis interstitial
     Route: 048
     Dates: start: 2004
  2. ELMIRON [Suspect]
     Active Substance: PENTOSAN POLYSULFATE SODIUM
     Route: 048
     Dates: start: 200501, end: 201701
  3. ELMIRON [Suspect]
     Active Substance: PENTOSAN POLYSULFATE SODIUM
     Route: 048
     Dates: start: 201702, end: 202101
  4. ELMIRON [Suspect]
     Active Substance: PENTOSAN POLYSULFATE SODIUM
     Route: 048
     Dates: end: 20210326
  5. AZITHROMYCIN [Concomitant]
     Active Substance: AZITHROMYCIN
     Indication: Antibiotic therapy
     Dates: start: 20100107, end: 20160823
  6. CIPROFLOXACIN HYDROCHLORIDE [Concomitant]
     Active Substance: CIPROFLOXACIN HYDROCHLORIDE
     Indication: Antibiotic therapy
     Dates: start: 20120109, end: 20161130
  7. MONTELUKAST SODIUM [Concomitant]
     Active Substance: MONTELUKAST SODIUM
     Indication: Asthma
     Dates: start: 20120817, end: 20201116
  8. FLUCONAZOLE [Concomitant]
     Active Substance: FLUCONAZOLE
     Indication: Fungal infection
     Dates: start: 20101008, end: 20190509
  9. NYSTATIN;TRIAMCINOLONE [Concomitant]
     Indication: Fungal infection
     Dates: start: 20130423, end: 20171122
  10. DOXYCYCLINE HYCLATE [Concomitant]
     Active Substance: DOXYCYCLINE HYCLATE
     Indication: Bacterial infection
     Dates: start: 20130923, end: 20190707
  11. PRAVASTATIN SODIUM [Concomitant]
     Active Substance: PRAVASTATIN SODIUM
     Indication: Blood cholesterol abnormal
     Dates: start: 20110120, end: 20201026
  12. PRAVASTATIN SODIUM [Concomitant]
     Active Substance: PRAVASTATIN SODIUM
     Dates: start: 20140918, end: 20160226
  13. SYNTHROID [Concomitant]
     Active Substance: LEVOTHYROXINE SODIUM
     Indication: Hyperthyroidism
     Dates: start: 20110701, end: 20130124
  14. SYNTHROID [Concomitant]
     Active Substance: LEVOTHYROXINE SODIUM
     Indication: Hypothyroidism
     Dates: start: 20110711, end: 20230124
  15. TAMSULOSIN HYDROCHLORIDE [Concomitant]
     Active Substance: TAMSULOSIN HYDROCHLORIDE
     Indication: Lower urinary tract symptoms
     Dates: start: 20100916, end: 20130921
  16. ALENDRONATE SODIUM [Concomitant]
     Active Substance: ALENDRONATE SODIUM
     Indication: Bone disorder
     Dates: start: 20121017, end: 20130323
  17. BYSTOLIC [Concomitant]
     Active Substance: NEBIVOLOL HYDROCHLORIDE
     Indication: Blood pressure measurement
     Dates: start: 20121130, end: 20131115

REACTIONS (2)
  - Dry age-related macular degeneration [Not Recovered/Not Resolved]
  - Off label use [Unknown]

NARRATIVE: CASE EVENT DATE: 20050101
